FAERS Safety Report 9447058 (Version 2)
Quarter: 2013Q3

REPORT INFORMATION
  Report Type: Spontaneous
  Country: US (occurrence: US)
  Receive Date: 20130807
  Receipt Date: 20130904
  Transmission Date: 20140515
  Serious: No
  Sender: FDA-Public Use
  Company Number: US-AMGEN-USASP2013053396

PATIENT
  Age: 72 Year
  Sex: Male

DRUGS (2)
  1. ENBREL [Suspect]
     Indication: RHEUMATOID ARTHRITIS
     Dosage: 50 MG, QWK
     Route: 065
     Dates: start: 201306
  2. ENBREL [Suspect]
     Dosage: UNK
     Route: 065

REACTIONS (5)
  - Urinary tract disorder [Not Recovered/Not Resolved]
  - Blood urine present [Not Recovered/Not Resolved]
  - Nerve compression [Unknown]
  - Spinal column stenosis [Unknown]
  - Cystitis [Unknown]
